FAERS Safety Report 8142847-4 (Version None)
Quarter: 2012Q1

REPORT INFORMATION
  Report Type: 
  Country: None (occurrence: None)
  Receive Date: 20120216
  Receipt Date: 20110412
  Transmission Date: 20120608
  Serious: Yes (Hospitalization)
  Sender: FDA-Public Use
  Company Number: PHEH2011US012960

PATIENT
  Sex: Female

DRUGS (2)
  1. EXJADE [Suspect]
     Dosage: UNK UKN, UNK
     Route: 048
  2. EXJADE [Suspect]
     Dosage: 250 MG, QD
     Route: 048

REACTIONS (2)
  - GENERAL PHYSICAL CONDITION ABNORMAL [None]
  - BOWEL MOVEMENT IRREGULARITY [None]
